FAERS Safety Report 24237560 (Version 1)
Quarter: 2024Q3

REPORT INFORMATION
  Report Type: Spontaneous
  Country: US (occurrence: None)
  Receive Date: 20240821
  Receipt Date: 20240821
  Transmission Date: 20241017
  Serious: Yes (unspecified)
  Sender: Public
  Company Number: None

PATIENT
  Age: 47 Year
  Sex: Female

DRUGS (1)
  1. AMBRISENTAN [Suspect]
     Active Substance: AMBRISENTAN
     Indication: Pulmonary arterial hypertension
     Dosage: 5MG QD ORAL
     Route: 048
     Dates: start: 20210712, end: 20240722

REACTIONS (2)
  - Peripheral swelling [None]
  - Hypervolaemia [None]

NARRATIVE: CASE EVENT DATE: 20240722
